FAERS Safety Report 15073577 (Version 1)
Quarter: 2018Q2

REPORT INFORMATION
  Report Type: Spontaneous
  Country: US (occurrence: US)
  Receive Date: 20180627
  Receipt Date: 20180627
  Transmission Date: 20180711
  Serious: No
  Sender: FDA-Public Use
  Company Number: US-GLENMARK PHARMACEUTICALS-2017GMK029840

PATIENT

DRUGS (1)
  1. ONDANSETRON ORALLY DISINTEGRATING TABLETS [Suspect]
     Active Substance: ONDANSETRON
     Indication: PROPHYLAXIS OF NAUSEA AND VOMITING
     Dosage: UNK
     Route: 065

REACTIONS (7)
  - Oral discomfort [Unknown]
  - Tongue discomfort [Unknown]
  - Feeling abnormal [Unknown]
  - Malaise [Unknown]
  - Product quality issue [Unknown]
  - Nausea [Unknown]
  - Product taste abnormal [Unknown]
